FAERS Safety Report 7305328-3 (Version None)
Quarter: 2011Q1

REPORT INFORMATION
  Report Type: 
  Country: None (occurrence: None)
  Receive Date: 20110222
  Receipt Date: 20110208
  Transmission Date: 20110831
  Serious: Yes (Hospitalization)
  Sender: FDA-Public Use
  Company Number: PHHY2011SE09872

PATIENT
  Sex: Female

DRUGS (2)
  1. TEGRETOL [Suspect]
     Indication: MUSCLE SPASMS
     Dosage: UNK
     Dates: start: 20100601
  2. KEPPRA [Suspect]
     Dosage: 500 MG, QD
     Route: 048

REACTIONS (6)
  - PRURITUS [None]
  - RASH [None]
  - ERYTHEMA [None]
  - ESCHERICHIA SEPSIS [None]
  - DRUG HYPERSENSITIVITY [None]
  - PHOTOSENSITIVITY REACTION [None]
